FAERS Safety Report 4835489-7 (Version None)
Quarter: 2005Q4

REPORT INFORMATION
  Report Type: 
  Country: None (occurrence: None)
  Receive Date: 20051121
  Receipt Date: 20051107
  Transmission Date: 20060501
  Serious: Yes (Life-Threatening, Hospitalization, Other)
  Sender: FDA-Public Use
  Company Number: 2005142891

PATIENT
  Sex: Female
  Weight: 113.3993 kg

DRUGS (1)
  1. DETROL LA [Suspect]
     Indication: POLLAKIURIA
     Dosage: 2 MG (2 MG, 1 IN 1 D), ORAL
     Route: 048

REACTIONS (8)
  - ANXIETY [None]
  - BLOOD DISORDER [None]
  - CEREBROVASCULAR ACCIDENT [None]
  - DRUG INEFFECTIVE [None]
  - DYSPEPSIA [None]
  - FALL [None]
  - UTERINE CANCER [None]
  - VISUAL ACUITY REDUCED [None]
